FAERS Safety Report 8505348 (Version 4)
Quarter: 2013Q2

REPORT INFORMATION
  Report Type: Spontaneous
  Country: US (occurrence: US)
  Receive Date: 20120412
  Receipt Date: 20130613
  Transmission Date: 20140414
  Serious: Yes (Hospitalization, Other)
  Sender: FDA-Public Use
  Company Number: US-UCBSA-054914

PATIENT
  Age: 32 Year
  Sex: Female

DRUGS (2)
  1. CIMZIA [Suspect]
     Indication: CROHN^S DISEASE
     Route: 058
     Dates: start: 20100315, end: 2010
  2. CIMZIA [Suspect]
     Indication: CROHN^S DISEASE
     Dates: start: 20100406

REACTIONS (3)
  - Pyelonephritis [Not Recovered/Not Resolved]
  - Kidney infection [Not Recovered/Not Resolved]
  - Urinary tract infection [Not Recovered/Not Resolved]
